FAERS Safety Report 5630784-6 (Version None)
Quarter: 2008Q1

REPORT INFORMATION
  Report Type: 
  Country: None (occurrence: None)
  Receive Date: 20080219
  Receipt Date: 20080213
  Transmission Date: 20080703
  Serious: Yes (Hospitalization, Other)
  Sender: FDA-Public Use
  Company Number: GB-BRISTOL-MYERS SQUIBB COMPANY-14058580

PATIENT
  Age: 77 Year
  Sex: Male
  Weight: 85 kg

DRUGS (5)
  1. SPRYCEL [Suspect]
     Indication: CHRONIC MYELOID LEUKAEMIA
     Dosage: DOSE REDUCED TO 100 MG QD FROM 30OCT07-27DEC07.
     Route: 048
     Dates: start: 20071009, end: 20071227
  2. LEVOTHYROXINE SODIUM [Concomitant]
     Indication: THYROXINE
     Route: 048
  3. CARDURA [Concomitant]
     Indication: BLOOD PRESSURE INCREASED
     Route: 048
  4. ZOTON [Concomitant]
     Indication: DYSPEPSIA
     Route: 048
     Dates: start: 20071009
  5. FUROSEMIDE [Concomitant]
     Indication: CARDIAC FAILURE CONGESTIVE
     Route: 048
     Dates: start: 20071030

REACTIONS (4)
  - ATRIAL FIBRILLATION [None]
  - BUNDLE BRANCH BLOCK LEFT [None]
  - CARDIAC FAILURE CONGESTIVE [None]
  - PLEURAL EFFUSION [None]
